FAERS Safety Report 10424515 (Version 2)
Quarter: 2014Q3

REPORT INFORMATION
  Report Type: Spontaneous
  Country: US (occurrence: None)
  Receive Date: 20140821
  Receipt Date: 20140904
  Transmission Date: 20150326
  Serious: Yes (Life-Threatening, Hospitalization, Other)
  Sender: FDA-Public Use
  Company Number: 003-225

PATIENT
  Age: 47 Year
  Sex: Female

DRUGS (1)
  1. CROFAB [Suspect]
     Active Substance: CROTALIDAE POLYVALENT IMMUNE FAB (OVINE)
     Indication: SNAKE BITE
     Dates: start: 20140812

REACTIONS (11)
  - Abdominal pain [None]
  - Respiratory rate increased [None]
  - Vomiting [None]
  - Dyspnoea [None]
  - Pain [None]
  - Nausea [None]
  - Infusion related reaction [None]
  - Hypertension [None]
  - Anxiety [None]
  - Swelling [None]
  - Tachycardia [None]

NARRATIVE: CASE EVENT DATE: 20140812
